FAERS Safety Report 6375133-3 (Version None)
Quarter: 2009Q3

REPORT INFORMATION
  Report Type: 
  Country: None (occurrence: None)
  Receive Date: 20090924
  Receipt Date: 20090917
  Transmission Date: 20100115
  Serious: Yes (Other)
  Sender: FDA-Public Use
  Company Number: HK-ROCHE-657337

PATIENT
  Sex: Female
  Weight: 54 kg

DRUGS (4)
  1. XELODA [Suspect]
     Dosage: REPORTED FREQUENCY: ON DAY 1-14 (3-WEEKLY CYCLE).
     Route: 048
     Dates: start: 20090731, end: 20090903
  2. AVASTIN [Suspect]
     Route: 042
     Dates: start: 20090731, end: 20090821
  3. PYRIDOXINE [Concomitant]
     Indication: PROPHYLAXIS
     Route: 048
     Dates: start: 20090821
  4. METOCLOPRAMIDE [Concomitant]
     Indication: ANTIEMETIC SUPPORTIVE CARE
     Route: 048
     Dates: start: 20090821

REACTIONS (1)
  - DRUG ERUPTION [None]
